FAERS Safety Report 14592998 (Version 1)
Quarter: 2018Q1

REPORT INFORMATION
  Report Type: Spontaneous
  Country: US (occurrence: US)
  Receive Date: 20180302
  Receipt Date: 20180302
  Transmission Date: 20180509
  Serious: No
  Sender: FDA-Public Use
  Company Number: US-ENDO PHARMACEUTICALS INC-2017-004973

PATIENT
  Age: 63 Year
  Sex: Male

DRUGS (1)
  1. XIAFLEX [Suspect]
     Active Substance: COLLAGENASE CLOSTRIDIUM HISTOLYTICUM
     Indication: DUPUYTREN^S CONTRACTURE
     Dosage: UNK UNK, UNKNOWN
     Route: 065
     Dates: start: 20170911

REACTIONS (1)
  - Swollen tongue [Unknown]

NARRATIVE: CASE EVENT DATE: 20170911
